FAERS Safety Report 18012032 (Version 2)
Quarter: 2020Q3

REPORT INFORMATION
  Report Type: Report from Study
  Country: MX (occurrence: MX)
  Receive Date: 20200713
  Receipt Date: 20200716
  Transmission Date: 20201103
  Serious: No
  Sender: FDA-Public Use
  Company Number: MX-UCBSA-2020027199

PATIENT
  Sex: Female
  Weight: 45 kg

DRUGS (4)
  1. ATEMPERATOR [VALPROIC ACID] [Concomitant]
     Active Substance: VALPROIC ACID
     Indication: PRODUCT USED FOR UNKNOWN INDICATION
  2. LEVETIRACETAM. [Suspect]
     Active Substance: LEVETIRACETAM
     Indication: EPILEPSY
     Dosage: 1500 MILLIGRAM, 2X/DAY (BID)
     Route: 048
  3. EPAMIN [PHENYTOIN] [Concomitant]
     Indication: PRODUCT USED FOR UNKNOWN INDICATION
  4. LEVETIRACETAM. [Suspect]
     Active Substance: LEVETIRACETAM
     Dosage: 2000 MILLIGRAM, 2X/DAY (BID)
     Route: 048

REACTIONS (3)
  - Off label use [Unknown]
  - Maternal exposure before pregnancy [Unknown]
  - Prescribed overdose [Unknown]
